FAERS Safety Report 17670036 (Version 7)
Quarter: 2021Q2

REPORT INFORMATION
  Report Type: Spontaneous
  Country: US (occurrence: US)
  Receive Date: 20200415
  Receipt Date: 20210602
  Transmission Date: 20210716
  Serious: No
  Sender: FDA-Public Use
  Company Number: US-PFIZER INC-2019149862

PATIENT
  Age: 49 Year
  Sex: Male
  Weight: 92 kg

DRUGS (5)
  1. LYRICA [Suspect]
     Active Substance: PREGABALIN
     Dosage: 150 MG, 4X/DAY
     Route: 048
  2. LYRICA [Suspect]
     Active Substance: PREGABALIN
     Dosage: 150 MG, 3X/DAY
     Route: 048
  3. LYRICA [Suspect]
     Active Substance: PREGABALIN
     Dosage: 150 MG, 4X/DAY
  4. LYRICA [Suspect]
     Active Substance: PREGABALIN
     Dosage: 3 DF, DAILY
  5. LYRICA [Suspect]
     Active Substance: PREGABALIN
     Dosage: 2 DF, DAILY

REACTIONS (4)
  - Intentional product misuse [Unknown]
  - Anxiety [Unknown]
  - Memory impairment [Unknown]
  - Pain [Unknown]
